FAERS Safety Report 6003629-2 (Version None)
Quarter: 2008Q4

REPORT INFORMATION
  Report Type: 
  Country: None (occurrence: None)
  Receive Date: 20081212
  Receipt Date: 20081212
  Transmission Date: 20090506
  Serious: Yes (Life-Threatening, Other)
  Sender: FDA-Public Use
  Company Number: None

PATIENT
  Age: 37 Year
  Sex: Female
  Weight: 81.6475 kg

DRUGS (2)
  1. SINGULAIR [Suspect]
     Indication: ASTHMA
     Dosage: 1 PILL 1 A DAY PO
     Route: 048
     Dates: start: 20080215, end: 20080615
  2. SINGULAIR [Suspect]
     Indication: MULTIPLE ALLERGIES
     Dosage: 1 PILL 1 A DAY PO
     Route: 048
     Dates: start: 20080215, end: 20080615

REACTIONS (7)
  - DEPRESSION [None]
  - DISSOCIATION [None]
  - DISTURBANCE IN ATTENTION [None]
  - FEELING ABNORMAL [None]
  - MORBID THOUGHTS [None]
  - SELF INJURIOUS BEHAVIOUR [None]
  - STARING [None]
